FAERS Safety Report 10479137 (Version 1)
Quarter: 2014Q3

REPORT INFORMATION
  Report Type: Spontaneous
  Country: GB (occurrence: GB)
  Receive Date: 20140926
  Receipt Date: 20140926
  Transmission Date: 20150326
  Serious: Yes (Other)
  Sender: FDA-Public Use
  Company Number: GB-PFIZER INC-2014263125

PATIENT
  Age: 59 Year
  Sex: Male

DRUGS (1)
  1. MINODIAB [Suspect]
     Active Substance: GLIPIZIDE

REACTIONS (2)
  - Dysphagia [Unknown]
  - Obesity [Unknown]
